FAERS Safety Report 9761797 (Version 1)
Quarter: 2013Q4

REPORT INFORMATION
  Report Type: Spontaneous
  Country: US (occurrence: US)
  Receive Date: 20131216
  Receipt Date: 20131216
  Transmission Date: 20140711
  Serious: No
  Sender: FDA-Public Use
  Company Number: US-BIOGENIDEC-2013BI102471

PATIENT
  Sex: Female
  Weight: 72 kg

DRUGS (9)
  1. TECFIDERA [Suspect]
     Indication: RELAPSING-REMITTING MULTIPLE SCLEROSIS
     Route: 048
  2. TECFIDERA [Suspect]
     Indication: RELAPSING-REMITTING MULTIPLE SCLEROSIS
     Route: 048
  3. PENTOXIFYLLINE ER [Concomitant]
  4. BACLOFEN [Concomitant]
  5. B COMPLEX [Concomitant]
  6. FISH OIL [Concomitant]
  7. VITAMIN C [Concomitant]
  8. PROBIOTIC GOLD [Concomitant]
  9. REBIF REBIDO [Concomitant]

REACTIONS (7)
  - Balance disorder [Unknown]
  - Muscular weakness [Unknown]
  - Gait disturbance [Unknown]
  - Fall [Recovered/Resolved]
  - Hypoaesthesia [Unknown]
  - Muscle spasticity [Unknown]
  - Musculoskeletal stiffness [Unknown]
